FAERS Safety Report 7072356-5 (Version None)
Quarter: 2010Q4

REPORT INFORMATION
  Report Type: 
  Country: None (occurrence: None)
  Receive Date: 20101029
  Receipt Date: 20100118
  Transmission Date: 20110411
  Serious: No
  Sender: FDA-Public Use
  Company Number: A0839935A

PATIENT
  Age: 62 Year
  Sex: Female

DRUGS (11)
  1. ADVAIR DISKUS 100/50 [Suspect]
     Indication: CHRONIC OBSTRUCTIVE PULMONARY DISEASE
     Route: 055
  2. LASIX [Concomitant]
     Dosage: 40MG TWICE PER DAY
  3. POTASSIUM CHLORIDE [Concomitant]
  4. SPIRIVA [Concomitant]
  5. FLEXERIL [Concomitant]
  6. MELOXICAM [Concomitant]
     Dosage: 7.5MG TWICE PER DAY
  7. CELEXA [Concomitant]
     Dosage: 40MG PER DAY
  8. ESTROGEN [Concomitant]
  9. TOPROL-XL [Concomitant]
  10. XANAX [Concomitant]
  11. AVALIDE [Concomitant]
     Dosage: 12.5MG PER DAY

REACTIONS (1)
  - TOOTH LOSS [None]
